FAERS Safety Report 15277274 (Version 1)
Quarter: 2018Q3

REPORT INFORMATION
  Report Type: Spontaneous
  Country: US (occurrence: US)
  Receive Date: 20180814
  Receipt Date: 20180814
  Transmission Date: 20181010
  Serious: No
  Sender: FDA-Public Use
  Company Number: US-CMP PHARMA-2018CMP00020

PATIENT
  Sex: Female

DRUGS (1)
  1. CAROSPIR [Suspect]
     Active Substance: SPIRONOLACTONE

REACTIONS (1)
  - Vomiting [Unknown]
